FAERS Safety Report 17991080 (Version 5)
Quarter: 2021Q2

REPORT INFORMATION
  Report Type: Report from Study
  Country: DE (occurrence: DE)
  Receive Date: 20200707
  Receipt Date: 20210611
  Transmission Date: 20210717
  Serious: Yes (Hospitalization, Other)
  Sender: FDA-Public Use
  Company Number: DE-PFIZER INC-2020255418

PATIENT
  Sex: Female
  Weight: 72 kg

DRUGS (9)
  1. KISQALI [Suspect]
     Active Substance: RIBOCICLIB
     Dosage: 400 MG, QD (SCHEME: 21 DAYS INTAKE, 7 DAYS PAUSE)
     Route: 048
     Dates: start: 20200308, end: 20200617
  2. PREGABALIN. [Suspect]
     Active Substance: PREGABALIN
     Dosage: 75 MG, 2X/DAY (IN THE MORNING, IN THE EVENING)
     Route: 048
  3. KISQALI [Suspect]
     Active Substance: RIBOCICLIB
     Dosage: 200 MG, QD (SCHEME: 21 DAYS INTAKE, 7 DAYS PAUSE)
     Route: 048
     Dates: start: 20201006
  4. MIRTAZAPINE. [Suspect]
     Active Substance: MIRTAZAPINE
     Dosage: 30 MG, 1X/DAY
     Route: 048
  5. QUETIAPINE. [Suspect]
     Active Substance: QUETIAPINE
     Dosage: 200 MG, 1X/DAY (AT NIGHT)
     Route: 048
  6. ESCITALOPRAM [Suspect]
     Active Substance: ESCITALOPRAM OXALATE
     Dosage: 10 MG, 1X/DAY (IN THE MORNING)
     Route: 048
  7. LETROZOLE. [Suspect]
     Active Substance: LETROZOLE
     Indication: BREAST CANCER
     Dosage: 2.5 MG, QD
     Route: 048
     Dates: start: 20200211
  8. KISQALI [Suspect]
     Active Substance: RIBOCICLIB
     Indication: BREAST CANCER
     Dosage: 200 MG, QD (SCHEME: 21 DAYS INTAKE, 7 DAYS PAUSE)
     Route: 048
     Dates: start: 20200211, end: 20200307
  9. NALOXONE HYDROCHLORIDE/TILIDINE HYDROCHLORIDE [Suspect]
     Active Substance: NALOXONE HYDROCHLORIDE\TILIDINE HYDROCHLORIDE
     Dosage: UNK (ONCE IN THE MORNING, ONCE IN THE EVENING)
     Route: 048

REACTIONS (7)
  - Leukopenia [Not Recovered/Not Resolved]
  - Electrocardiogram QT prolonged [Recovered/Resolved]
  - Vomiting [Recovered/Resolved]
  - Upper gastrointestinal haemorrhage [Recovered/Resolved]
  - Anaemia [Not Recovered/Not Resolved]
  - Haematemesis [Recovered/Resolved]
  - Diarrhoea [Recovered/Resolved]

NARRATIVE: CASE EVENT DATE: 20200330
